FAERS Safety Report 21622016 (Version 1)
Quarter: 2022Q4

REPORT INFORMATION
  Report Type: Spontaneous
  Country: US (occurrence: None)
  Receive Date: 20221118
  Receipt Date: 20221118
  Transmission Date: 20230113
  Serious: Yes (Other)
  Sender: FDA-Public Use
  Company Number: None

PATIENT
  Age: 78 Year
  Sex: Male
  Weight: 106.1 kg

DRUGS (1)
  1. COPIKTRA [Suspect]
     Active Substance: DUVELISIB
     Indication: Cutaneous T-cell lymphoma stage I
     Dosage: FREQUENCY : DAILY;?
     Route: 048
     Dates: start: 20220908, end: 20221018

REACTIONS (13)
  - Nausea [None]
  - Hyperkalaemia [None]
  - Hyperglycaemia [None]
  - Myelosuppression [None]
  - Aspartate aminotransferase increased [None]
  - Alanine aminotransferase increased [None]
  - Eructation [None]
  - Fatigue [None]
  - Therapy interrupted [None]
  - Red blood cell count decreased [None]
  - Haemoglobin decreased [None]
  - Haematocrit decreased [None]
  - Hepatotoxicity [None]

NARRATIVE: CASE EVENT DATE: 20221017
